FAERS Safety Report 12321315 (Version 1)
Quarter: 2016Q2

REPORT INFORMATION
  Report Type: Spontaneous
  Country: FR (occurrence: FR)
  Receive Date: 20160502
  Receipt Date: 20160502
  Transmission Date: 20160815
  Serious: Yes (Other)
  Sender: FDA-Public Use
  Company Number: PHHY2016FR008817

PATIENT
  Age: 60 Year
  Sex: Male
  Weight: 110 kg

DRUGS (4)
  1. ULTIBRO BREEZHALER [Suspect]
     Active Substance: GLYCOPYRRONIUM\INDACATEROL
     Indication: CHRONIC OBSTRUCTIVE PULMONARY DISEASE
     Dosage: 1 DF, QD
     Route: 055
     Dates: start: 20151204, end: 20151229
  2. HYTACAND [Concomitant]
     Active Substance: CANDESARTAN CILEXETIL\HYDROCHLOROTHIAZIDE
     Indication: PRODUCT USED FOR UNKNOWN INDICATION
     Dosage: UNK
     Route: 065
     Dates: start: 2010
  3. METFORMIN [Concomitant]
     Active Substance: METFORMIN HYDROCHLORIDE
     Indication: PRODUCT USED FOR UNKNOWN INDICATION
     Dosage: UNK
     Route: 065
     Dates: start: 2008
  4. VENTOLINE [Concomitant]
     Active Substance: ALBUTEROL
     Indication: PRODUCT USED FOR UNKNOWN INDICATION
     Dosage: UNK
     Route: 065
     Dates: start: 2005

REACTIONS (14)
  - Urticaria [Unknown]
  - Rash [Unknown]
  - Skin oedema [Unknown]
  - Swelling [Unknown]
  - Flushing [Unknown]
  - Face oedema [Recovered/Resolved]
  - Eyelid oedema [Recovered/Resolved]
  - Erythema [Unknown]
  - Superinfection [Recovered/Resolved]
  - Muscle spasms [Unknown]
  - Eye oedema [Unknown]
  - Type I hypersensitivity [Unknown]
  - Oedema [Recovered/Resolved]
  - Skin swelling [Unknown]

NARRATIVE: CASE EVENT DATE: 20160103
